FAERS Safety Report 9387069 (Version 2)
Quarter: 2013Q3

REPORT INFORMATION
  Report Type: Spontaneous
  Country: GB (occurrence: None)
  Receive Date: 20130702
  Receipt Date: 20130805
  Transmission Date: 20140515
  Serious: Yes (Hospitalization)
  Sender: FDA-Public Use
  Company Number: 1770489

PATIENT
  Age: 67 Year
  Sex: Female

DRUGS (13)
  1. (VINCRISTINE SULFATE) [Suspect]
     Indication: PRODUCT USED FOR UNKNOWN INDICATION
     Dosage: 2 (UNITS UNSPECIFIED),
  2. RITUXIMAB [Suspect]
     Indication: PRODUCT USED FOR UNKNOWN INDICATION
     Dosage: 645  (UNITS UNSPECIFIED),
     Dates: start: 20130529
  3. CYCLOPHOSPHAMIDE [Suspect]
     Indication: PRODUCT USED FOR UNKNOWN INDICATION
     Dosage: 1300 (UNIT UNSPECIFIED)
  4. DOXORUBICIN HYDROCHLORIDE [Suspect]
     Indication: PRODUCT USED FOR UNKNOWN INDICATION
     Dosage: 85 UNIT UNSPECIFIED
  5. (DOMPERIDONE) [Concomitant]
  6. (FLUCONAZOLE) [Concomitant]
  7. (ALLOPURINOL) [Concomitant]
  8. (CO-TRIMOXAZOLE ?/00086101/) [Concomitant]
  9. (ACICLOVIR) [Concomitant]
  10. (OMEPRAZOLE) [Concomitant]
  11. BORTEZOMIB [Suspect]
     Indication: PRODUCT USED FOR UNKNOWN INDICATION
  12. PREDNISOLONE [Suspect]
     Indication: PRODUCT USED FOR UNKNOWN INDICATION
     Dosage: 100 (UNIT UNSPECIFIED)
  13. LIPOSOMAL DOXORUBICIN HYDROCHLORIDE [Suspect]
     Dosage: 85 UNIT UNSPECIFIED
     Route: 042

REACTIONS (2)
  - Chills [None]
  - Urinary tract infection [None]
